FAERS Safety Report 6182627-2 (Version None)
Quarter: 2009Q2

REPORT INFORMATION
  Report Type: 
  Country: None (occurrence: None)
  Receive Date: 20090507
  Receipt Date: 20090501
  Transmission Date: 20091009
  Serious: Yes (Other)
  Sender: FDA-Public Use
  Company Number: A0773354A

PATIENT
  Sex: Female

DRUGS (1)
  1. ALLI [Suspect]
     Route: 048
     Dates: start: 20070601

REACTIONS (4)
  - DEPENDENCE [None]
  - DRUG INEFFECTIVE [None]
  - FAECAL INCONTINENCE [None]
  - INTENTIONAL DRUG MISUSE [None]
